FAERS Safety Report 7582749-5 (Version None)
Quarter: 2011Q2

REPORT INFORMATION
  Report Type: 
  Country: None (occurrence: None)
  Receive Date: 20110630
  Receipt Date: 20110616
  Transmission Date: 20111010
  Serious: Yes (Other)
  Sender: FDA-Public Use
  Company Number: GB-MYLANLABS-2011S1012418

PATIENT
  Age: 15 Month
  Sex: Male
  Weight: 10.4 kg

DRUGS (7)
  1. RIFAMPICIN [Interacting]
     Indication: ENDOCARDITIS
     Route: 048
     Dates: start: 20110502, end: 20110526
  2. CEFOTAXIME [Interacting]
     Indication: ENDOCARDITIS
     Route: 042
     Dates: start: 20110502, end: 20110526
  3. VANCOMYCIN [Interacting]
     Indication: ENDOCARDITIS
     Route: 042
     Dates: start: 20110502, end: 20110526
  4. ASPIRIN [Concomitant]
     Indication: ANTIPLATELET THERAPY
     Route: 048
     Dates: start: 20110415
  5. NYSTATIN [Concomitant]
     Indication: CANDIDIASIS
     Route: 048
     Dates: start: 20110524, end: 20110531
  6. SPIRONOLACTONE [Concomitant]
     Indication: DIABETES MELLITUS
     Dates: start: 20110305, end: 20110528
  7. FUROSEMIDE [Suspect]
     Indication: CARDIAC DISORDER
     Route: 048
     Dates: start: 20100305, end: 20110528

REACTIONS (2)
  - DRUG INTERACTION [None]
  - RASH ERYTHEMATOUS [None]
